FAERS Safety Report 7701298-4 (Version None)
Quarter: 2011Q3

REPORT INFORMATION
  Report Type: 
  Country: None (occurrence: None)
  Receive Date: 20110822
  Receipt Date: 20110810
  Transmission Date: 20111222
  Serious: Yes (Hospitalization)
  Sender: FDA-Public Use
  Company Number: KR-BAYER-201017744GPV

PATIENT
  Age: 41 Year
  Sex: Male
  Weight: 62.2 kg

DRUGS (29)
  1. FENTANYL [Concomitant]
     Indication: ABDOMINAL PAIN
     Dosage: 12 ?G (DAILY DOSE), , TRANSDERMAL
     Route: 062
     Dates: start: 20091210
  2. HYDROSON [Concomitant]
     Indication: PALMAR-PLANTAR ERYTHRODYSAESTHESIA SYNDROME
     Dosage: 1 G (DAILY DOSE), , TOPICAL
     Route: 061
     Dates: start: 20100122
  3. URSODIOL [Concomitant]
     Indication: HEPATITIS
     Dosage: 600 MG (DAILY DOSE), , ORAL
     Route: 048
     Dates: start: 20091207
  4. SORAFENIB [Suspect]
     Indication: HEPATIC NEOPLASM MALIGNANT
     Route: 048
     Dates: start: 20100122, end: 20100210
  5. BLINDED SORAFENIB (RAF KINASE INHIBITOR) [Suspect]
     Dosage: 100 MG (DAILY DOSE), QD, ORAL
     Route: 048
     Dates: start: 20100211, end: 20100219
  6. LOPERAMIDE HCL [Concomitant]
     Indication: DIARRHOEA
     Dosage: 2 MG (DAILY DOSE), , ORAL
     Route: 048
     Dates: start: 20100122, end: 20100302
  7. BLINDED SORAFENIB (RAF KINASE INHIBITOR) [Suspect]
     Indication: HEPATIC NEOPLASM MALIGNANT
     Dosage: 150 MG (DAILY DOSE), QD, ORAL
     Route: 048
     Dates: start: 20100122, end: 20100210
  8. JEFFIX [Concomitant]
     Indication: HEPATITIS
     Dosage: 100 MG (DAILY DOSE), , ORAL
     Route: 048
     Dates: start: 20100115
  9. DEXTROSE [Concomitant]
     Indication: HYPERKALAEMIA
     Dosage: 100 ML (DAILY DOSE), , INTRAVENOUS
     Route: 042
     Dates: start: 20100315, end: 20100315
  10. DEXTROSE [Concomitant]
     Dosage: 50 ML (DAILY DOSE), , INTRAVENOUS
     Route: 042
     Dates: start: 20100315, end: 20100315
  11. BLINDED SORAFENIB (RAF KINASE INHIBITOR) [Suspect]
     Dosage: 100 MG (DAILY DOSE), QD, ORAL
     Route: 048
     Dates: start: 20100219, end: 20100226
  12. VITAMIN B COMPLEX CAP [Concomitant]
     Indication: VITAMIN SUPPLEMENTATION
     Dosage: 1 DF (DAILY DOSE), , ORAL
     Route: 048
     Dates: start: 20091230
  13. HEXAMIDIN [Concomitant]
     Indication: STERILISATION
     Dosage: 5 ML (DAILY DOSE), ,
     Dates: start: 20100122
  14. SILYMARIN [Concomitant]
     Indication: HEPATITIS
     Dosage: 420 MG (DAILY DOSE), , ORAL
     Route: 048
     Dates: start: 20091207
  15. SACCHAROMYCES MEDICINALIS [Concomitant]
     Indication: DIARRHOEA
     Dosage: 339 MG (DAILY DOSE), , ORAL
     Route: 048
     Dates: start: 20100210, end: 20100219
  16. DEXTROSE 5% [Concomitant]
     Indication: HYPERKALAEMIA
     Dosage: 50 ML (DAILY DOSE), , INTRAVENOUS
     Route: 042
     Dates: start: 20100304, end: 20100304
  17. DEXTROSE 5% [Concomitant]
     Indication: ELECTROLYTE SUBSTITUTION THERAPY
     Dosage: 1000 ML (DAILY DOSE), , INTRAVENOUS
     Route: 042
     Dates: start: 20100228, end: 20100306
  18. CALCIUM GLUCONATE [Concomitant]
     Indication: HYPERKALAEMIA
     Dosage: 20 ML (DAILY DOSE), , INTRAVENOUS
     Route: 042
     Dates: start: 20100315, end: 20100315
  19. LAMIVUDINE [Concomitant]
     Indication: ANTIVIRAL PROPHYLAXIS
     Dosage: 100 MG (DAILY DOSE), , ORAL
     Route: 048
     Dates: start: 20100115
  20. SORAFENIB [Suspect]
     Dosage: 400 MG (DAILY DOSE), QD, ORAL
     Route: 048
     Dates: start: 20100226, end: 20100302
  21. URSODIOL [Concomitant]
     Dosage: 600 MG (DAILY DOSE), , ORAL
     Route: 048
     Dates: start: 20091207
  22. SORAFENIB [Suspect]
     Route: 048
     Dates: start: 20100210, end: 20100219
  23. BLINDED SORAFENIB (RAF KINASE INHIBITOR) [Suspect]
     Dosage: 50 MG (DAILY DOSE), , ORAL
     Route: 048
     Dates: start: 20100226, end: 20100302
  24. FENTANYL [Concomitant]
     Dosage: 12 ?G (DAILY DOSE), , INTRADERMAL
     Route: 023
     Dates: start: 20091210
  25. MORPHIN HCL [Concomitant]
     Dosage: 15 MG (DAILY DOSE), , ORAL
     Route: 048
     Dates: start: 20100309
  26. HUMALOG [Concomitant]
     Indication: HYPERKALAEMIA
     Dosage: 0.01 ML (DAILY DOSE), , INTRAVENOUS
     Route: 042
     Dates: start: 20100315, end: 20100315
  27. SORAFENIB [Suspect]
     Route: 048
     Dates: start: 20100219, end: 20100226
  28. DEXTROSE W/POTASSIUM CHLORIDE AND NACL [Concomitant]
     Indication: PROPHYLAXIS
     Dosage: 1000 ML (DAILY DOSE), ,
     Dates: start: 20100304, end: 20100304
  29. MORPHIN HCL [Concomitant]
     Indication: ABDOMINAL PAIN
     Dosage: 2 MG (DAILY DOSE), , ORAL
     Route: 048
     Dates: start: 20100304, end: 20100304

REACTIONS (4)
  - ASCITES [None]
  - ASTHENIA [None]
  - PLEURAL EFFUSION [None]
  - CHOLANGITIS [None]
